FAERS Safety Report 9484333 (Version 2)
Quarter: 2013Q3

REPORT INFORMATION
  Report Type: Spontaneous
  Country: US (occurrence: US)
  Receive Date: 20130828
  Receipt Date: 20130828
  Transmission Date: 20140515
  Serious: Yes (Hospitalization, Other)
  Sender: FDA-Public Use
  Company Number: US-AMGEN-KDL303989

PATIENT
  Age: 58 Year
  Sex: Female

DRUGS (1)
  1. ENBREL [Suspect]
     Indication: RHEUMATOID ARTHRITIS
     Dosage: 50 MG, QWK
     Route: 058
     Dates: start: 20080726

REACTIONS (13)
  - Pulmonary mass [Recovered/Resolved]
  - Angina unstable [Not Recovered/Not Resolved]
  - Coronary artery occlusion [Not Recovered/Not Resolved]
  - Vascular occlusion [Not Recovered/Not Resolved]
  - Gait disturbance [Not Recovered/Not Resolved]
  - Plantar fasciitis [Not Recovered/Not Resolved]
  - Pain in jaw [Recovered/Resolved]
  - Insomnia [Recovered/Resolved]
  - Injection site rash [Recovering/Resolving]
  - Cholecystitis [Recovered/Resolved]
  - Injection site bruising [Unknown]
  - Injection site erythema [Recovering/Resolving]
  - Injection site swelling [Unknown]
